FAERS Safety Report 25853416 (Version 1)
Quarter: 2025Q3

REPORT INFORMATION
  Report Type: Spontaneous
  Country: US (occurrence: US)
  Receive Date: 20250926
  Receipt Date: 20250926
  Transmission Date: 20251021
  Serious: Yes (Life-Threatening, Hospitalization, Other)
  Sender: ALEMBIC
  Company Number: US-ALEMBIC-2024SCAL001496

PATIENT

DRUGS (6)
  1. VENLAFAXINE [Interacting]
     Active Substance: VENLAFAXINE HYDROCHLORIDE
     Indication: Product used for unknown indication
     Route: 065
  2. FENTANYL [Interacting]
     Active Substance: FENTANYL
     Indication: Product used for unknown indication
     Route: 065
  3. OXYCODONE [Interacting]
     Active Substance: OXYCODONE
     Indication: Product used for unknown indication
     Route: 065
  4. MEPERIDINE HYDROCHLORIDE [Interacting]
     Active Substance: MEPERIDINE HYDROCHLORIDE
     Indication: Product used for unknown indication
     Route: 065
  5. FLUCONAZOLE [Interacting]
     Active Substance: FLUCONAZOLE
     Indication: Product used for unknown indication
     Route: 065
  6. COBICISTAT [Interacting]
     Active Substance: COBICISTAT
     Indication: HIV infection
     Route: 065

REACTIONS (10)
  - Pneumonia aspiration [Recovering/Resolving]
  - Drug interaction [Recovering/Resolving]
  - Serotonin syndrome [Recovering/Resolving]
  - Mental status changes [Recovering/Resolving]
  - Lethargy [Recovering/Resolving]
  - Respiratory distress [Recovering/Resolving]
  - Metabolic acidosis [Recovering/Resolving]
  - Hyperthermia [Recovering/Resolving]
  - Hyperreflexia [Recovering/Resolving]
  - Tremor [Recovering/Resolving]
